FAERS Safety Report 7232699-9 (Version None)
Quarter: 2011Q1

REPORT INFORMATION
  Report Type: 
  Country: None (occurrence: None)
  Receive Date: 20110106
  Receipt Date: 20101223
  Transmission Date: 20110831
  Serious: Yes (Death, Other)
  Sender: FDA-Public Use
  Company Number: 2010SP059718

PATIENT
  Age: 33 Year
  Sex: Female

DRUGS (6)
  1. ALBUTEROL [Suspect]
     Indication: RESPIRATORY THERAPY
     Dosage: 3 DF
  2. PREDNISONE [Concomitant]
  3. LORAZEPAM [Concomitant]
  4. LUNESTA [Concomitant]
  5. SAPHRIS [Suspect]
     Indication: BIPOLAR DISORDER
     Dosage: 10 MG; BID; SL
     Route: 060
     Dates: start: 20101027, end: 20101110
  6. CEPHALEXIN [Concomitant]

REACTIONS (18)
  - FATIGUE [None]
  - TINNITUS [None]
  - DYSPNOEA [None]
  - SENSORY DISTURBANCE [None]
  - OEDEMA PERIPHERAL [None]
  - PALLOR [None]
  - JOINT SWELLING [None]
  - STOMATITIS [None]
  - DIZZINESS [None]
  - URTICARIA [None]
  - CONVULSION [None]
  - NAUSEA [None]
  - DYSPHAGIA [None]
  - SYNCOPE [None]
  - GAIT DISTURBANCE [None]
  - LOSS OF CONSCIOUSNESS [None]
  - CONTUSION [None]
  - DYSPNOEA EXERTIONAL [None]
